FAERS Safety Report 5602863-0 (Version None)
Quarter: 2008Q1

REPORT INFORMATION
  Report Type: 
  Country: None (occurrence: None)
  Receive Date: 20080125
  Receipt Date: 20080117
  Transmission Date: 20080703
  Serious: Yes (Death)
  Sender: FDA-Public Use
  Company Number: US-ABBOTT-08P-163-0434131-00

PATIENT
  Age: 17 Year
  Sex: Female

DRUGS (5)
  1. DEPAKOTE [Suspect]
     Indication: DRUG USE FOR UNKNOWN INDICATION
     Route: 048
  2. LITHIUM CARBONATE [Concomitant]
     Indication: DRUG USE FOR UNKNOWN INDICATION
  3. AMLODIPINE [Concomitant]
     Indication: DRUG USE FOR UNKNOWN INDICATION
  4. METHYLPHENIDATE HCL [Concomitant]
     Indication: DRUG USE FOR UNKNOWN INDICATION
  5. 10 OTHER PSYCHOTROPIC MEDICATIONS [Concomitant]
     Indication: DRUG USE FOR UNKNOWN INDICATION

REACTIONS (1)
  - BRAIN OEDEMA [None]
